FAERS Safety Report 6930431-7 (Version None)
Quarter: 2010Q3

REPORT INFORMATION
  Report Type: 
  Country: None (occurrence: None)
  Receive Date: 20100818
  Receipt Date: 20100806
  Transmission Date: 20110219
  Serious: Yes (Other)
  Sender: FDA-Public Use
  Company Number: US-PFIZER INC-2010099273

PATIENT
  Sex: Female
  Weight: 124.26 kg

DRUGS (23)
  1. LYRICA [Suspect]
     Indication: FIBROMYALGIA
     Dosage: 150 MG, 3X/DAY
     Route: 048
  2. LYRICA [Suspect]
     Dosage: 150 MG, 4X/DAY
  3. LISINOPRIL [Suspect]
     Indication: BLOOD PRESSURE INCREASED
     Dosage: 10 MG. DAILY
     Route: 048
  4. CETIRIZINE HCL [Suspect]
     Dosage: 10 MG DAILY
     Route: 048
  5. FLUTICASONE PROPIONATE [Suspect]
     Indication: NASAL SEPTUM DEVIATION
     Dosage: UNK
     Route: 045
     Dates: start: 20100101
  6. SIMVASTATIN [Suspect]
     Indication: BLOOD CHOLESTEROL INCREASED
     Dosage: 40 MG, DAILY
     Route: 048
  7. MELOXICAM [Suspect]
     Indication: PAIN
     Dosage: 15 MG, 2X/DAY
     Route: 048
  8. ACETYLSALICYLIC ACID [Suspect]
     Indication: CARDIAC DISORDER
     Dosage: 81 MG. DAILY
     Route: 048
  9. LEVOTHYROXINE SODIUM [Suspect]
     Indication: THYROID DISORDER
     Dosage: 50 MCG, DAILY
     Route: 048
  10. TEGRETOL [Suspect]
     Indication: MOOD SWINGS
     Dosage: 400 MG IN MORNING, 800 MG IN EVENING
     Route: 048
  11. TEGRETOL [Suspect]
     Indication: PERSONALITY DISORDER
  12. PROVIGIL [Suspect]
     Indication: SLEEP APNOEA SYNDROME
     Dosage: 200 MG, DAILY
     Route: 048
  13. PROPRANOLOL [Suspect]
     Indication: BLOOD PRESSURE INCREASED
     Dosage: 20 MG, 2X/DAY
     Route: 048
  14. METHOCARBAMOL [Suspect]
     Indication: PAIN
     Dosage: 500 MG, 2X/DAY
     Route: 048
  15. BACLOFEN [Suspect]
     Indication: RESTLESS LEGS SYNDROME
     Dosage: 20 MG, 3X/DAY
     Route: 048
  16. METHADOSE [Suspect]
     Indication: PAIN
     Dosage: 10 MG. 5X/DAY
     Route: 048
  17. CYMBALTA [Suspect]
     Indication: DEPRESSION
     Dosage: 60 MG, 2X/DAY
     Route: 048
  18. OMEPRAZOLE [Suspect]
     Indication: GASTROOESOPHAGEAL REFLUX DISEASE
     Dosage: 40 MG, DAILY
     Route: 048
  19. LIDODERM [Suspect]
     Indication: MYALGIA
     Dosage: UNK
  20. INSULIN DETEMIR [Suspect]
     Indication: DIABETES MELLITUS
     Dosage: 47 UNITS IN AM AND PM
     Route: 058
  21. MIRALAX [Suspect]
     Indication: CONSTIPATION
     Dosage: 17 G, DAILY
     Route: 048
  22. FISH OIL [Suspect]
     Dosage: UNK
  23. VITAMIN E [Suspect]
     Dosage: UNK

REACTIONS (2)
  - CONVULSION [None]
  - FIBROMYALGIA [None]
